FAERS Safety Report 14686288 (Version 2)
Quarter: 2018Q1

REPORT INFORMATION
  Report Type: Spontaneous
  Country: FR (occurrence: FR)
  Receive Date: 20180327
  Receipt Date: 20180328
  Transmission Date: 20180509
  Serious: Yes (Death, Other)
  Sender: FDA-Public Use
  Company Number: FR-TEVA-2018-FR-872165

PATIENT
  Age: 67 Year
  Sex: Male

DRUGS (10)
  1. CLOPIDOGREL [Concomitant]
     Active Substance: CLOPIDOGREL BISULFATE
     Indication: ANTIPLATELET THERAPY
     Dosage: DAILY
     Route: 065
  2. ASPIRIN. [Interacting]
     Active Substance: ASPIRIN
     Dosage: DAILY
     Route: 065
  3. OFLOXACIN. [Suspect]
     Active Substance: OFLOXACIN
     Indication: URINARY TRACT INFECTION
     Route: 065
  4. ATORVASTATIN [Concomitant]
     Active Substance: ATORVASTATIN
     Dosage: DAILY
     Route: 065
  5. BISOPROLOL [Concomitant]
     Active Substance: BISOPROLOL
     Dosage: DAILY
     Route: 065
  6. COUMADIN [Interacting]
     Active Substance: WARFARIN SODIUM
     Indication: ANTICOAGULANT THERAPY
     Route: 065
  7. PERINDOPRIL [Concomitant]
     Active Substance: PERINDOPRIL
     Dosage: DAILY
     Route: 065
  8. TRINITRIN [Concomitant]
     Active Substance: NITROGLYCERIN
     Dosage: DAILY
     Route: 065
  9. ACETAMINOPHEN. [Concomitant]
     Active Substance: ACETAMINOPHEN
     Indication: PHARYNGITIS
     Route: 065
  10. OMEPRAZOLE. [Concomitant]
     Active Substance: OMEPRAZOLE
     Dosage: DAILY
     Route: 065

REACTIONS (8)
  - Upper airway obstruction [Fatal]
  - Drug interaction [Fatal]
  - Overdose [Fatal]
  - Blood urine present [Fatal]
  - Intra-abdominal haemorrhage [Fatal]
  - Insomnia [Not Recovered/Not Resolved]
  - Laryngeal haematoma [Fatal]
  - Asphyxia [Fatal]
